FAERS Safety Report 8204207-7 (Version None)
Quarter: 2012Q1

REPORT INFORMATION
  Report Type: 
  Country: None (occurrence: None)
  Receive Date: 20120313
  Receipt Date: 20120302
  Transmission Date: 20120608
  Serious: Yes (Other)
  Sender: FDA-Public Use
  Company Number: BR-NOVOPROD-346451

PATIENT
  Age: 53 Year
  Sex: Female
  Weight: 64 kg

DRUGS (5)
  1. ABILIFY [Concomitant]
     Indication: BIPOLAR DISORDER
     Dosage: 1 TAB, QD
     Dates: start: 20110302
  2. DEPAKOTE [Concomitant]
     Indication: DEPRESSION
  3. DEPAKOTE [Concomitant]
     Indication: BIPOLAR DISORDER
     Dosage: 2 TAB, QD
     Route: 048
     Dates: start: 20110302
  4. ABILIFY [Concomitant]
     Indication: DEPRESSION
  5. VICTOZA [Suspect]
     Indication: WEIGHT CONTROL
     Dosage: 0.6 MG, QD
     Route: 058
     Dates: start: 20120204, end: 20120212

REACTIONS (1)
  - LETHARGY [None]
